FAERS Safety Report 7431821-9 (Version None)
Quarter: 2011Q2

REPORT INFORMATION
  Report Type: 
  Country: None (occurrence: None)
  Receive Date: 20110420
  Receipt Date: 20110420
  Transmission Date: 20111010
  Serious: Yes (Hospitalization)
  Sender: FDA-Public Use
  Company Number: None

PATIENT
  Age: 61 Year
  Sex: Male
  Weight: 123.2 kg

DRUGS (1)
  1. NAPROXEN [Suspect]
     Dates: start: 20110119, end: 20110202

REACTIONS (2)
  - DIZZINESS [None]
  - HYPOTENSION [None]
